FAERS Safety Report 23223213 (Version 1)
Quarter: 2023Q4

REPORT INFORMATION
  Report Type: Spontaneous
  Country: JP (occurrence: JP)
  Receive Date: 20231123
  Receipt Date: 20231123
  Transmission Date: 20240110
  Serious: Yes (Other)
  Sender: FDA-Public Use
  Company Number: JP-SANOFI-AVENTIS R+D-2023SA135683

PATIENT

DRUGS (1)
  1. HYDROXYCHLOROQUINE SULFATE [Suspect]
     Active Substance: HYDROXYCHLOROQUINE SULFATE
     Indication: Product used for unknown indication
     Dosage: UNK (FILM-COATED TABLET )
     Route: 048

REACTIONS (11)
  - Myocarditis [Unknown]
  - Renal impairment [Unknown]
  - Abdominal discomfort [Unknown]
  - Cutaneous symptom [Unknown]
  - Eye symptom [Unknown]
  - Malaise [Unknown]
  - Palpitations [Unknown]
  - Protein urine present [Unknown]
  - Pyrexia [Unknown]
  - Headache [Unknown]
  - Pruritus [Unknown]
